FAERS Safety Report 12990964 (Version 2)
Quarter: 2017Q1

REPORT INFORMATION
  Report Type: Spontaneous
  Country: GB (occurrence: GB)
  Receive Date: 20161201
  Receipt Date: 20170309
  Transmission Date: 20170428
  Serious: Yes (Disabling, Other)
  Sender: FDA-Public Use
  Company Number: GB-BRISTOL-MYERS SQUIBB COMPANY-BMS-2016-101423

PATIENT
  Age: 56 Year
  Sex: Male

DRUGS (2)
  1. APIXABAN [Suspect]
     Active Substance: APIXABAN
     Indication: CEREBROVASCULAR ACCIDENT PROPHYLAXIS
     Dosage: 5 MG, BID
     Route: 048
  2. LANSOPRAZOLE. [Concomitant]
     Active Substance: LANSOPRAZOLE
     Indication: HIGH FREQUENCY ABLATION
     Dosage: 30 MG, BID
     Route: 048
     Dates: start: 201608

REACTIONS (4)
  - Oesophageal ulcer [Not Recovered/Not Resolved]
  - Atrial fibrillation [Unknown]
  - Cardiac ablation [Unknown]
  - Odynophagia [Unknown]

NARRATIVE: CASE EVENT DATE: 201608
